FAERS Safety Report 5403786-2 (Version None)
Quarter: 2007Q3

REPORT INFORMATION
  Report Type: 
  Country: None (occurrence: None)
  Receive Date: 20070802
  Receipt Date: 20070726
  Transmission Date: 20080115
  Serious: Yes (Hospitalization)
  Sender: FDA-Public Use
  Company Number: JP-BAYER-200710523BYL

PATIENT

DRUGS (1)
  1. CIPROXAN-I.V. [Suspect]
     Dosage: TOTAL DAILY DOSE: 600 MG  UNIT DOSE: 300 MG
     Route: 041

REACTIONS (1)
  - APLASTIC ANAEMIA [None]
